FAERS Safety Report 8214798-8 (Version None)
Quarter: 2012Q1

REPORT INFORMATION
  Report Type: 
  Country: None (occurrence: None)
  Receive Date: 20120316
  Receipt Date: 20120308
  Transmission Date: 20120608
  Serious: Yes (Hospitalization, Other)
  Sender: FDA-Public Use
  Company Number: DE-JNJFOC-20120210791

PATIENT
  Age: 62 Year
  Sex: Female

DRUGS (4)
  1. SIMPONI [Suspect]
     Route: 058
     Dates: start: 20100602, end: 20110801
  2. SIMPONI [Suspect]
     Route: 042
     Dates: start: 20110101
  3. SIMPONI [Suspect]
     Indication: RHEUMATOID ARTHRITIS
     Route: 058
     Dates: start: 20090101
  4. ISONIAZID [Concomitant]
     Indication: LATENT TUBERCULOSIS

REACTIONS (3)
  - DIVERTICULITIS [None]
  - INCORRECT ROUTE OF DRUG ADMINISTRATION [None]
  - CLOSTRIDIAL INFECTION [None]
